FAERS Safety Report 9927470 (Version 2)
Quarter: 2014Q1

REPORT INFORMATION
  Report Type: Spontaneous
  Country: US (occurrence: US)
  Receive Date: 20140227
  Receipt Date: 20140303
  Transmission Date: 20141002
  Serious: No
  Sender: FDA-Public Use
  Company Number: US-009507513-1402USA010318

PATIENT
  Age: 50 Year
  Sex: Female
  Weight: 68.27 kg

DRUGS (1)
  1. NUVARING [Suspect]
     Indication: UTERINE LEIOMYOMA
     Dosage: UNK
     Route: 067
     Dates: start: 20140203, end: 20140216

REACTIONS (6)
  - Angina pectoris [Unknown]
  - Insomnia [Unknown]
  - Dizziness [Unknown]
  - Depression [Unknown]
  - Headache [Unknown]
  - Asthenia [Unknown]
